FAERS Safety Report 11436249 (Version 1)
Quarter: 2015Q3

REPORT INFORMATION
  Report Type: Spontaneous
  Country: US (occurrence: US)
  Receive Date: 20150821
  Receipt Date: 20150821
  Transmission Date: 20151125
  Serious: No
  Sender: FDA-Public Use
  Company Number: US-ELI_LILLY_AND_COMPANY-US201404005031

PATIENT
  Sex: Male

DRUGS (4)
  1. ALFUSIN [Concomitant]
     Indication: PROSTATIC DISORDER
     Dosage: 10 MG, UNKNOWN
  2. SUPER BETA PROSTATE [Concomitant]
     Active Substance: DIETARY SUPPLEMENT
     Indication: PROSTATIC DISORDER
  3. CIALIS [Suspect]
     Active Substance: TADALAFIL
     Indication: ERECTILE DYSFUNCTION
     Dosage: 20 MG, UNKNOWN
     Route: 065
     Dates: start: 20140414
  4. TEGRETOL [Concomitant]
     Active Substance: CARBAMAZEPINE
     Dosage: 20 MG, BID

REACTIONS (4)
  - Adverse event [Unknown]
  - Decreased appetite [Unknown]
  - Drug ineffective [Unknown]
  - Medication error [Unknown]
